FAERS Safety Report 10952906 (Version 1)
Quarter: 2015Q1

REPORT INFORMATION
  Report Type: Spontaneous
  Country: US (occurrence: None)
  Receive Date: 20150324
  Receipt Date: 20150324
  Transmission Date: 20150721
  Serious: No
  Sender: FDA-Public Use
  Company Number: None

PATIENT
  Age: 68 Year
  Sex: Male
  Weight: 130.18 kg

DRUGS (3)
  1. HYDRALIZINE [Concomitant]
  2. GLUCOSAMINE HCL [Concomitant]
     Active Substance: GLUCOSAMINE
  3. LOSARTAN/HCTZ TAB 100-25 [Suspect]
     Active Substance: HYDROCHLOROTHIAZIDE\LOSARTAN
     Indication: HYPERTENSION
     Dosage: 1 PILL 1 A DAY BY MOUTH
     Route: 048
     Dates: start: 20150210, end: 20150219

REACTIONS (1)
  - Blood pressure increased [None]

NARRATIVE: CASE EVENT DATE: 20150219
